FAERS Safety Report 15073023 (Version 1)
Quarter: 2018Q2

REPORT INFORMATION
  Report Type: Spontaneous
  Country: SI (occurrence: SI)
  Receive Date: 20180627
  Receipt Date: 20180627
  Transmission Date: 20180711
  Serious: Yes (Life-Threatening)
  Sender: FDA-Public Use
  Company Number: SI-TEVA-2018-SI-912501

PATIENT
  Age: 72 Year
  Sex: Female

DRUGS (3)
  1. OXALIPLATIN TEVA [Suspect]
     Active Substance: OXALIPLATIN
     Indication: GASTROINTESTINAL CARCINOMA
     Route: 048
     Dates: start: 20180503, end: 20180503
  2. CAPECITABINE. [Concomitant]
     Active Substance: CAPECITABINE
     Dosage: ACCORDING TO THE SCHEME
  3. KVENTIAX [Concomitant]
     Active Substance: QUETIAPINE FUMARATE

REACTIONS (3)
  - Acute respiratory failure [Recovered/Resolved]
  - Nausea [Recovered/Resolved]
  - Dyspnoea [Recovered/Resolved]

NARRATIVE: CASE EVENT DATE: 20180503
